FAERS Safety Report 5357814-3 (Version None)
Quarter: 2007Q2

REPORT INFORMATION
  Report Type: 
  Country: None (occurrence: None)
  Receive Date: 20070530
  Receipt Date: 20061213
  Transmission Date: 20071010
  Serious: Yes (Other)
  Sender: FDA-Public Use
  Company Number: US200609000554

PATIENT
  Age: 49 Year
  Sex: Female
  Weight: 49.9 kg

DRUGS (6)
  1. ZYPREXA [Suspect]
     Dosage: 20 MG; 5 MG
     Dates: start: 20031001, end: 20040701
  2. ZYPREXA [Suspect]
     Dosage: 20 MG; 5 MG
     Dates: start: 20041201
  3. SEROQUEL [Concomitant]
  4. TOFRANIL [Concomitant]
  5. REMERON [Concomitant]
  6. PREMARIN [Concomitant]

REACTIONS (5)
  - DIABETES MELLITUS [None]
  - DIABETIC COMA [None]
  - PANCREATITIS [None]
  - POLYDIPSIA [None]
  - VISION BLURRED [None]
